FAERS Safety Report 8849496 (Version 4)
Quarter: 2012Q4

REPORT INFORMATION
  Report Type: 
  Country: JP (occurrence: JP)
  Receive Date: 20121019
  Receipt Date: 20121204
  Transmission Date: 20130627
  Serious: Yes (Disabling, Other)
  Sender: FDA-Public Use
  Company Number: JP-PFIZER INC-2012260877

PATIENT
  Age: 70 Year
  Sex: Female

DRUGS (17)
  1. JZOLOFT [Suspect]
     Dosage: 50 mg, daily
     Dates: start: 200911
  2. WYPAX [Suspect]
     Dosage: 1 mg, daily
     Dates: start: 200911, end: 201107
  3. LENDORMIN [Concomitant]
     Dosage: UNK
     Dates: start: 20070913
  4. RESCULA [Concomitant]
     Indication: GLAUCOMA
     Dosage: 1 Gtt, 2x/day each eye
     Route: 047
     Dates: start: 20070725, end: 20100228
  5. RESCULA [Concomitant]
     Indication: OCULAR HYPERTENSION
  6. TIMOPTOL [Concomitant]
     Indication: GLAUCOMA
     Dosage: 1 Gtt, 2x/day each eye
     Route: 047
     Dates: start: 20100120, end: 20100228
  7. TIMOPTOL [Concomitant]
     Indication: OCULAR HYPERTENSION
  8. TAPROS [Concomitant]
     Indication: GLAUCOMA
     Dosage: 1 Gtt, 1x/day each eye
     Route: 047
     Dates: start: 20100301
  9. TAPROS [Concomitant]
     Indication: OCULAR HYPERTENSION
  10. COSOPT [Concomitant]
     Indication: GLAUCOMA
     Dosage: 1 Gtt, 2x/day each eye
     Route: 047
     Dates: start: 20101216
  11. COSOPT [Concomitant]
     Indication: OCULAR HYPERTENSION
  12. DETANTOL [Concomitant]
     Indication: GLAUCOMA
     Dosage: 1 Gtt, 2x/day twice daily
     Route: 047
     Dates: start: 20110614
  13. DETANTOL [Concomitant]
     Indication: OCULAR HYPERTENSION
  14. SANPILO [Concomitant]
     Indication: GLAUCOMA
     Dosage: 1 Gtt, 4x/day each eye
     Route: 047
     Dates: start: 20120110
  15. SANPILO [Concomitant]
     Indication: OCULAR HYPERTENSION
  16. ALPHAGAN [Concomitant]
     Indication: GLAUCOMA
     Dosage: 1 Gtt, 2x/day each eye
     Route: 047
     Dates: start: 20121016
  17. ALPHAGAN [Concomitant]
     Indication: OCULAR HYPERTENSION

REACTIONS (4)
  - Intraocular pressure increased [Recovered/Resolved with Sequelae]
  - Visual field tests abnormal [Recovered/Resolved with Sequelae]
  - Mydriasis [Not Recovered/Not Resolved]
  - Visual impairment [Unknown]
